FAERS Safety Report 9647732 (Version 1)
Quarter: 2013Q4

REPORT INFORMATION
  Report Type: Spontaneous
  Country: GB (occurrence: GB)
  Receive Date: 20131028
  Receipt Date: 20131028
  Transmission Date: 20140711
  Serious: Yes (Other)
  Sender: FDA-Public Use
  Company Number: GB-JNJFOC-20131012282

PATIENT
  Age: 78 Year
  Sex: Male

DRUGS (14)
  1. ABIRATERONE ACETATE [Suspect]
     Indication: PROSTATE CANCER METASTATIC
     Route: 048
     Dates: start: 20130801
  2. ALLOPURINOL [Concomitant]
     Route: 065
  3. DIGOXIN [Concomitant]
     Route: 065
  4. DOXAZOSIN [Concomitant]
     Route: 065
  5. INDAPAMIDE [Concomitant]
     Route: 065
  6. LAMOTRIGINE [Concomitant]
     Route: 065
  7. LANSOPRAZOLE [Concomitant]
     Route: 065
  8. PREDNISOLONE [Concomitant]
     Route: 065
  9. RAMIPRIL [Concomitant]
     Route: 065
  10. SALBUTAMOL [Concomitant]
     Route: 065
  11. SYMBICORT [Concomitant]
     Route: 065
  12. THEOPHYLLINE [Concomitant]
     Route: 065
  13. TIOTROPIUM BROMIDE [Concomitant]
     Route: 065
  14. WARFARIN [Concomitant]
     Route: 065

REACTIONS (2)
  - Hypokalaemia [Recovering/Resolving]
  - Blood magnesium decreased [Recovering/Resolving]
